FAERS Safety Report 8614683-3 (Version None)
Quarter: 2012Q3

REPORT INFORMATION
  Report Type: 
  Country: None (occurrence: None)
  Receive Date: 20120823
  Receipt Date: 20120815
  Transmission Date: 20120928
  Serious: Yes (Life-Threatening)
  Sender: FDA-Public Use
  Company Number: US-CELGENEUS-163-21880-12051335

PATIENT
  Sex: Female

DRUGS (17)
  1. REVLIMID [Suspect]
     Indication: MULTIPLE MYELOMA
     Dosage: 15 MILLIGRAM
     Route: 048
     Dates: start: 20101014, end: 20120101
  2. VITAMIN D [Concomitant]
     Route: 065
  3. TAXOL [Concomitant]
     Indication: ENDOMETRIAL CANCER
  4. DEXAMETHASONE [Concomitant]
     Route: 065
  5. VITAMIN D [Concomitant]
     Route: 065
  6. VITAMIN B-12 [Concomitant]
     Route: 065
  7. FLAXSEED OIL [Concomitant]
     Route: 065
  8. ASPIRIN [Concomitant]
     Route: 065
  9. CALCIUM [Concomitant]
     Dosage: 500
     Route: 065
  10. CO Q 10 [Concomitant]
     Route: 065
  11. COLOSTRUM [Concomitant]
     Route: 065
  12. SYNTHROID [Concomitant]
     Route: 065
  13. VITAMIN E BLEND [Concomitant]
     Route: 065
  14. TAXOL [Concomitant]
     Indication: OVARIAN CANCER
     Dosage: 50 MILLIGRAM/SQ. METER
     Route: 041
  15. COQ10 [Concomitant]
     Route: 065
  16. MEGACE [Concomitant]
     Route: 065
     Dates: end: 20120501
  17. AMOXICILLIN [Concomitant]
     Route: 065

REACTIONS (2)
  - ENDOMETRIAL CANCER [None]
  - FULL BLOOD COUNT DECREASED [None]
